FAERS Safety Report 16630731 (Version 2)
Quarter: 2021Q2

REPORT INFORMATION
  Report Type: Spontaneous
  Country: FR (occurrence: FR)
  Receive Date: 20190725
  Receipt Date: 20210402
  Transmission Date: 20210716
  Serious: Yes (Death, Hospitalization, Other)
  Sender: FDA-Public Use
  Company Number: PHHY2018FR056661

PATIENT
  Age: 58 Year
  Sex: Female

DRUGS (6)
  1. ACICLOVIR [Suspect]
     Active Substance: ACYCLOVIR
     Indication: HEPATITIS FULMINANT
     Dosage: UNK
     Route: 065
     Dates: start: 20170918
  2. ACETYLCYSTEINE. [Suspect]
     Active Substance: ACETYLCYSTEINE
     Indication: HEPATITIS FULMINANT
     Dosage: UNK
     Route: 065
  3. ACICLOVIR [Suspect]
     Active Substance: ACYCLOVIR
     Indication: HEPATITIS
  4. ACETYLCYSTEINE. [Suspect]
     Active Substance: ACETYLCYSTEINE
     Indication: HEPATITIS
  5. ADALIMUMAB [Suspect]
     Active Substance: ADALIMUMAB
     Indication: POUCHITIS
     Dosage: 40 MG EVERY 2 WEEKS
     Route: 058
     Dates: start: 2014
  6. ADALIMUMAB [Suspect]
     Active Substance: ADALIMUMAB
     Indication: COLITIS

REACTIONS (9)
  - Immunodeficiency [Fatal]
  - Multiple organ dysfunction syndrome [Fatal]
  - Off label use [Unknown]
  - Acute kidney injury [Unknown]
  - Drug ineffective [Fatal]
  - Herpes simplex hepatitis [Unknown]
  - Drug resistance [Unknown]
  - Hepatitis fulminant [Unknown]
  - Systemic candida [Fatal]
